FAERS Safety Report 10360424 (Version 2)
Quarter: 2020Q3

REPORT INFORMATION
  Report Type: Spontaneous
  Country: US (occurrence: US)
  Receive Date: 20140804
  Receipt Date: 20200708
  Transmission Date: 20201102
  Serious: No
  Sender: FDA-Public Use
  Company Number: US-PFIZER INC-2014216426

PATIENT
  Age: 71 Year
  Sex: Female
  Weight: 77.1 kg

DRUGS (1)
  1. CELEBREX [Suspect]
     Active Substance: CELECOXIB
     Dosage: 200 MG, 1X/DAY
     Route: 048
     Dates: start: 2003, end: 200902

REACTIONS (3)
  - Feeling abnormal [Unknown]
  - Arthralgia [Unknown]
  - Arthritis [Unknown]
